FAERS Safety Report 20538078 (Version 1)
Quarter: 2022Q1

REPORT INFORMATION
  Report Type: Spontaneous
  Country: US (occurrence: None)
  Receive Date: 20220302
  Receipt Date: 20220302
  Transmission Date: 20220424
  Serious: No
  Sender: FDA-Public Use
  Company Number: US-ROCHE-2982054

PATIENT
  Sex: Female

DRUGS (3)
  1. NUTROPIN AQ [Suspect]
     Active Substance: SOMATROPIN
     Indication: Hypopituitarism
     Dosage: 10MG/2ML
     Route: 058
     Dates: start: 20200930
  2. NUTROPIN AQ [Suspect]
     Active Substance: SOMATROPIN
     Indication: Postoperative hypopituitarism
  3. NUTROPIN AQ [Suspect]
     Active Substance: SOMATROPIN
     Indication: Craniopharyngioma

REACTIONS (3)
  - Product complaint [Unknown]
  - Product dispensing error [Unknown]
  - No adverse event [Unknown]
